FAERS Safety Report 7796562-7 (Version None)
Quarter: 2011Q4

REPORT INFORMATION
  Report Type: 
  Country: None (occurrence: None)
  Receive Date: 20111005
  Receipt Date: 20110928
  Transmission Date: 20120403
  Serious: Yes (Other)
  Sender: FDA-Public Use
  Company Number: US-AMGEN-USASP2011050166

PATIENT
  Age: 44 Year
  Sex: Male

DRUGS (1)
  1. ENBREL [Suspect]
     Indication: PSORIASIS
     Dosage: 50 MG, QWK
     Dates: start: 20070831

REACTIONS (5)
  - NECK PAIN [None]
  - EAR PAIN [None]
  - MUSCULOSKELETAL PAIN [None]
  - HYPOAESTHESIA [None]
  - PAIN IN EXTREMITY [None]
